FAERS Safety Report 18978810 (Version 1)
Quarter: 2021Q1

REPORT INFORMATION
  Report Type: Report from Study
  Country: None (occurrence: CO)
  Receive Date: 20210308
  Receipt Date: 20210308
  Transmission Date: 20210420
  Serious: Yes (Hospitalization, Other)
  Sender: FDA-Public Use
  Company Number: CO-ABBVIE-21K-036-3802444-00

PATIENT
  Age: 66 Year
  Sex: Female
  Weight: 61 kg

DRUGS (2)
  1. ZEMPLAR [Suspect]
     Active Substance: PARICALCITOL
     Indication: HYPERPARATHYROIDISM SECONDARY
     Dosage: POST DIALYSIS
     Route: 048
     Dates: start: 20160616, end: 20210122
  2. ZEMPLAR [Suspect]
     Active Substance: PARICALCITOL
     Indication: CHRONIC KIDNEY DISEASE

REACTIONS (7)
  - Syncope [Recovering/Resolving]
  - Vein disorder [Recovering/Resolving]
  - Blood glucose abnormal [Recovering/Resolving]
  - Device related infection [Recovered/Resolved]
  - Blood pressure abnormal [Recovering/Resolving]
  - Device related infection [Recovering/Resolving]
  - Peripheral swelling [Recovering/Resolving]

NARRATIVE: CASE EVENT DATE: 202007
